FAERS Safety Report 7980309-5 (Version None)
Quarter: 2011Q4

REPORT INFORMATION
  Report Type: 
  Country: None (occurrence: None)
  Receive Date: 20111212
  Receipt Date: 20111202
  Transmission Date: 20120403
  Serious: Yes (Other)
  Sender: FDA-Public Use
  Company Number: 1000025961

PATIENT
  Sex: Female

DRUGS (2)
  1. NARCOTIC (NOS) (NARCOTIC NOS)) [Concomitant]
  2. VIIBRYD [Suspect]

REACTIONS (2)
  - SUICIDE ATTEMPT [None]
  - INTENTIONAL OVERDOSE [None]
